FAERS Safety Report 6139551-0 (Version None)
Quarter: 2009Q1

REPORT INFORMATION
  Report Type: 
  Country: None (occurrence: None)
  Receive Date: 20090326
  Receipt Date: 20090315
  Transmission Date: 20090719
  Serious: Yes (Death, Life-Threatening)
  Sender: FDA-Public Use
  Company Number: THYM-1000921

PATIENT
  Age: 8 Month
  Sex: Male
  Weight: 8 kg

DRUGS (5)
  1. THYMOGLOBULIN [Suspect]
     Indication: STEM CELL TRANSPLANT
     Dosage: 2.5 MG/KG, QD, INTRAVENOUS
     Route: 042
     Dates: start: 20090217, end: 20090218
  2. METHYLPREDNISOLONE [Concomitant]
  3. HYDROXYZINE HCL [Concomitant]
  4. FLUDARABINE PHOSPHATE [Concomitant]
  5. CYCLOPHOSPHAMIDE [Concomitant]

REACTIONS (4)
  - ANAPHYLACTIC REACTION [None]
  - PULMONARY HAEMORRHAGE [None]
  - PYREXIA [None]
  - SHOCK [None]
